FAERS Safety Report 7190571-7 (Version None)
Quarter: 2010Q4

REPORT INFORMATION
  Report Type: 
  Country: None (occurrence: None)
  Receive Date: 20101223
  Receipt Date: 20101215
  Transmission Date: 20110411
  Serious: Yes (Other)
  Sender: FDA-Public Use
  Company Number: TR-JNJFOC-20101206106

PATIENT
  Age: 60 Year
  Sex: Female
  Weight: 60 kg

DRUGS (7)
  1. REMICADE [Suspect]
     Indication: PSORIASIS
     Route: 042
  2. CIPRAM [Concomitant]
  3. METHOTREXATE [Concomitant]
     Indication: PSORIASIS
  4. CYCLOSPORINE [Concomitant]
     Indication: PSORIASIS
  5. PSORALEN ULTRAVIOLET A [Concomitant]
     Indication: PSORIASIS
  6. NEOTIGASON [Concomitant]
     Indication: PSORIASIS
  7. ANTIDEPRESSANT [Concomitant]
     Indication: DEPRESSION

REACTIONS (1)
  - LUNG SQUAMOUS CELL CARCINOMA STAGE UNSPECIFIED [None]
